FAERS Safety Report 5317810-9 (Version None)
Quarter: 2007Q2

REPORT INFORMATION
  Report Type: 
  Country: None (occurrence: None)
  Receive Date: 20070502
  Receipt Date: 20070502
  Transmission Date: 20071010
  Serious: Yes (Other)
  Sender: FDA-Public Use
  Company Number: None

PATIENT
  Age: 58 Year
  Sex: Male
  Weight: 113.3993 kg

DRUGS (2)
  1. COPAXONE [Suspect]
     Indication: MULTIPLE SCLEROSIS
     Dosage: 20 MG   QD   SQ
     Route: 058
     Dates: start: 20020401
  2. COUMADIN [Concomitant]

REACTIONS (5)
  - CELLULITIS [None]
  - ESCHAR [None]
  - INJECTION SITE ERYTHEMA [None]
  - NECROSIS [None]
  - SKIN LESION [None]
